FAERS Safety Report 5692377-4 (Version None)
Quarter: 2008Q2

REPORT INFORMATION
  Report Type: 
  Country: None (occurrence: None)
  Receive Date: 20080328
  Receipt Date: 20071212
  Transmission Date: 20081010
  Serious: Yes (Other)
  Sender: FDA-Public Use
  Company Number: US-WYE-H01700207

PATIENT
  Age: 77 Year
  Sex: Male
  Weight: 74.46 kg

DRUGS (1)
  1. TORISEL [Suspect]
     Indication: RENAL CELL CARCINOMA
     Dosage: WEEKLY DOSE UNSPECIFIED, INTRAVENOUS
     Route: 042
     Dates: start: 20071023, end: 20071031

REACTIONS (1)
  - BLOOD CREATININE INCREASED [None]
